FAERS Safety Report 8138701-4 (Version None)
Quarter: 2012Q1

REPORT INFORMATION
  Report Type: 
  Country: None (occurrence: None)
  Receive Date: 20120213
  Receipt Date: 20120130
  Transmission Date: 20120608
  Serious: Yes (Hospitalization)
  Sender: FDA-Public Use
  Company Number: 2012ST000072

PATIENT
  Age: 16 Year
  Sex: Female

DRUGS (5)
  1. MATULANE [Suspect]
     Indication: HODGKIN'S DISEASE
     Dosage: PO
     Route: 048
  2. VINCRISTINE [Suspect]
     Indication: HODGKIN'S DISEASE
  3. CYCLOPHOSPHAMIDE [Suspect]
     Indication: HODGKIN'S DISEASE
  4. PREDNISONE TAB [Suspect]
     Indication: HODGKIN'S DISEASE
  5. DOXORUBIXIN HYDROCHLORIDE [Suspect]
     Indication: HODGKIN'S DISEASE

REACTIONS (5)
  - DISORIENTATION [None]
  - ACUTE PSYCHOSIS [None]
  - CONFUSIONAL STATE [None]
  - HALLUCINATION [None]
  - PARANOIA [None]
